FAERS Safety Report 15393726 (Version 1)
Quarter: 2018Q3

REPORT INFORMATION
  Report Type: Other
  Country: CN (occurrence: CN)
  Receive Date: 20180917
  Receipt Date: 20180917
  Transmission Date: 20181010
  Serious: Yes (Life-Threatening, Other)
  Sender: FDA-Public Use
  Company Number: CN-GE HEALTHCARE LIFE SCIENCES-2018CSU003590

PATIENT

DRUGS (1)
  1. OMNIPAQUE [Suspect]
     Active Substance: IOHEXOL
     Indication: PRODUCT USED FOR UNKNOWN INDICATION
     Dosage: 70 MG, SINGLE
     Route: 041
     Dates: start: 20180426, end: 20180426

REACTIONS (7)
  - Hypoacusis [Recovering/Resolving]
  - Pyrexia [Recovering/Resolving]
  - Papule [Recovering/Resolving]
  - Pallor [Recovering/Resolving]
  - Chest discomfort [Recovering/Resolving]
  - Vision blurred [Recovering/Resolving]
  - Hyperhidrosis [Recovering/Resolving]

NARRATIVE: CASE EVENT DATE: 20180426
